FAERS Safety Report 18793845 (Version 1)
Quarter: 2021Q1

REPORT INFORMATION
  Report Type: Spontaneous
  Country: US (occurrence: US)
  Receive Date: 20210126
  Receipt Date: 20210126
  Transmission Date: 20210419
  Serious: Yes (Hospitalization, Other)
  Sender: FDA-Public Use
  Company Number: None

PATIENT
  Age: 32 Year
  Sex: Female
  Weight: 70.76 kg

DRUGS (1)
  1. SPINAL BUPIVACAINE EPIDURAL 0.75% IN 8.25% DEXTROSE [Suspect]
     Active Substance: BUPIVACAINE\DEXTROSE
     Route: 024
     Dates: start: 20210121, end: 20210121

REACTIONS (1)
  - Therapeutic product effect incomplete [None]

NARRATIVE: CASE EVENT DATE: 20210121
